FAERS Safety Report 5609172-4 (Version None)
Quarter: 2008Q1

REPORT INFORMATION
  Report Type: 
  Country: None (occurrence: None)
  Receive Date: 20080130
  Receipt Date: 20080130
  Transmission Date: 20080703
  Serious: No
  Sender: FDA-Public Use
  Company Number: None

PATIENT
  Sex: Female

DRUGS (1)
  1. SIMVASTATIN [Suspect]
     Indication: HYPERCHOLESTEROLAEMIA
     Dosage: 40 MG  1QD (DATES OF USE: JUNE OR JULY, 2007

REACTIONS (3)
  - BONE PAIN [None]
  - MALAISE [None]
  - MUSCULAR WEAKNESS [None]
